FAERS Safety Report 5725850-0 (Version None)
Quarter: 2008Q2

REPORT INFORMATION
  Report Type: 
  Country: None (occurrence: None)
  Receive Date: 20080429
  Receipt Date: 20080408
  Transmission Date: 20081010
  Serious: Yes (Hospitalization)
  Sender: FDA-Public Use
  Company Number: 2008S1005761

PATIENT
  Age: 47 Year
  Sex: Female

DRUGS (2)
  1. INDOMETHACIN [Suspect]
     Indication: OSTEOARTHRITIS
     Dosage: 50 MG; TWICE A DAY
  2. METOPROLOL TARTRATE [Concomitant]

REACTIONS (6)
  - ANOREXIA [None]
  - ASCITES [None]
  - AUTOIMMUNE HEPATITIS [None]
  - HEPATIC NECROSIS [None]
  - HEPATITIS ACUTE [None]
  - PANCYTOPENIA [None]
